FAERS Safety Report 22641199 (Version 1)
Quarter: 2023Q2

REPORT INFORMATION
  Report Type: Spontaneous
  Country: IT (occurrence: IT)
  Receive Date: 20230626
  Receipt Date: 20230626
  Transmission Date: 20230722
  Serious: Yes (Death, Hospitalization, Other)
  Sender: FDA-Public Use
  Company Number: IT-IBIGEN-2023.12815

PATIENT
  Age: 72 Year
  Sex: Female

DRUGS (8)
  1. TIROFIBAN [Suspect]
     Active Substance: TIROFIBAN
     Indication: Myocardial infarction
     Dosage: 0.04 ?G/KG/MIN LOADING DOSE, FOLLOWED BY 0.01 ?G/KG/MIN INFUSION ()
  2. FUROSEMIDE [Suspect]
     Active Substance: FUROSEMIDE
     Indication: Anuria
  3. PIPERACILLIN SODIUM\TAZOBACTAM SODIUM [Suspect]
     Active Substance: PIPERACILLIN SODIUM\TAZOBACTAM SODIUM
     Dosage: UNK, PIPERACILLIN/TAZOBACTAM + CEFTAROLIN ()
  4. CEFTAROLINE [Suspect]
     Active Substance: CEFTAROLINE
     Dosage: UNK, PIPERACILLIN/TAZOBACTAM + CEFTAROLIN ()
  5. Ticagrelor [TICAGRELOR] [Concomitant]
     Indication: Myocardial infarction
  6. Valsartan [VALSARTAN] [Concomitant]
     Indication: Hypertension
  7. PIPERACILLIN SODIUM\TAZOBACTAM SODIUM [Concomitant]
     Active Substance: PIPERACILLIN SODIUM\TAZOBACTAM SODIUM
     Indication: Antibiotic prophylaxis
  8. Lysine acetylsalicylate [ACETYLSALICYLATE LYSINE] [Concomitant]
     Indication: Myocardial infarction
     Dosage: 250 MG
     Route: 040

REACTIONS (20)
  - Thrombosis [Recovering/Resolving]
  - Chest pain [Fatal]
  - Anaemia [Fatal]
  - CSF white blood cell count increased [Fatal]
  - C-reactive protein increased [Fatal]
  - Procalcitonin increased [Fatal]
  - Confusional state [Fatal]
  - Anuria [Fatal]
  - Blood creatinine increased [Fatal]
  - Renal ischaemia [Recovering/Resolving]
  - Thrombocytopenic purpura [Fatal]
  - Respiratory failure [Fatal]
  - Haemodynamic instability [Fatal]
  - Hypoperfusion [Unknown]
  - Death [Fatal]
  - Thrombosis [Fatal]
  - Thrombotic microangiopathy [Recovering/Resolving]
  - Drug ineffective [Unknown]
  - Ischaemia [Fatal]
  - Haemolysis [Recovering/Resolving]
